FAERS Safety Report 5897745-3 (Version None)
Quarter: 2008Q3

REPORT INFORMATION
  Report Type: 
  Country: None (occurrence: None)
  Receive Date: 20080925
  Receipt Date: 20080916
  Transmission Date: 20090109
  Serious: Yes (Hospitalization, Other)
  Sender: FDA-Public Use
  Company Number: PHHY2008JP13078

PATIENT
  Sex: Male

DRUGS (9)
  1. DIOVAN [Suspect]
     Indication: HYPERTENSION
     Dosage: 80 MG, QD
     Route: 048
     Dates: start: 20071015, end: 20080521
  2. ATELEC [Concomitant]
     Indication: HYPERTENSION
     Dosage: 10 MG
     Route: 048
     Dates: start: 20060424
  3. MAINTATE [Concomitant]
     Indication: HYPERTENSION
     Dosage: 5 MG
     Route: 048
     Dates: start: 20060227
  4. PAMILCON [Concomitant]
     Dosage: UNK
  5. VOGLIBOSE [Concomitant]
     Indication: DIABETES MELLITUS
     Dosage: 0.4 MG
     Route: 048
  6. METFORMIN HCL [Concomitant]
     Indication: DIABETES MELLITUS
     Dosage: 500 MG
     Route: 048
  7. EUGLUCON [Concomitant]
     Indication: DIABETES MELLITUS
     Dosage: 5 MG
     Route: 048
     Dates: start: 20000101
  8. SIGMART [Concomitant]
     Indication: ANGINA PECTORIS
     Dosage: 15 MG
     Route: 048
  9. BEZATOL [Concomitant]
     Indication: HYPERLIPIDAEMIA
     Dosage: 400 MG
     Route: 048

REACTIONS (5)
  - BLOOD PRESSURE ABNORMAL [None]
  - EXTRACORPOREAL SHOCK WAVE THERAPY [None]
  - IDIOPATHIC THROMBOCYTOPENIC PURPURA [None]
  - LUMBAR SPINAL STENOSIS [None]
  - PLATELET COUNT DECREASED [None]
